FAERS Safety Report 8222340-0 (Version None)
Quarter: 2012Q1

REPORT INFORMATION
  Report Type: 
  Country: None (occurrence: None)
  Receive Date: 20120320
  Receipt Date: 20120313
  Transmission Date: 20120608
  Serious: Yes (Hospitalization)
  Sender: FDA-Public Use
  Company Number: US-BAYER-200937774NA

PATIENT
  Age: 45 Year
  Sex: Female
  Weight: 63.492 kg

DRUGS (27)
  1. YASMIN [Suspect]
  2. ZYRTEC [Concomitant]
     Dosage: UNK
     Dates: start: 20040101, end: 20070401
  3. MARIJUANA [Concomitant]
     Indication: CEREBRAL PALSY
     Dosage: UNK
     Dates: start: 20060101
  4. PERCOCET [Concomitant]
     Indication: PULMONARY EMBOLISM
     Dosage: 1 DF, QID
     Route: 048
     Dates: start: 20061027
  5. OXYCODONE HCL [Concomitant]
     Indication: PAIN
     Dosage: UNK
     Dates: start: 20060301, end: 20061101
  6. HYDROCODONE [Concomitant]
     Indication: PAIN
     Dosage: UNK
     Dates: start: 20050201, end: 20060701
  7. RELAFEN [Concomitant]
     Indication: OSTEOARTHRITIS
     Dosage: UNK
     Dates: start: 20050401
  8. MS CONTIN [Concomitant]
     Dosage: UNK
     Route: 048
     Dates: start: 20061112
  9. NEURONTIN [Concomitant]
     Dosage: UNK
     Dates: start: 20061107
  10. MIDRIN [Concomitant]
     Indication: HEADACHE
     Dosage: UNK
     Dates: start: 20060912
  11. GABAPENTIN [Concomitant]
     Indication: ANTICONVULSANT DRUG LEVEL THERAPEUTIC
     Dosage: UNK
     Dates: start: 20050201, end: 20070401
  12. TIZANIDINE HCL [Concomitant]
     Indication: MUSCLE RELAXANT THERAPY
     Dosage: UNK
     Dates: start: 20060501, end: 20061001
  13. ZOLOFT [Concomitant]
  14. QUININE SULFATE [Concomitant]
  15. ALBUTEROL [Concomitant]
     Dosage: UNK
     Dates: start: 20060501
  16. ZANTAC [Concomitant]
     Indication: ABDOMINAL PAIN UPPER
     Dosage: UNK
     Dates: start: 20051201
  17. PERCOCET [Concomitant]
     Indication: MYALGIA
     Dosage: UNK
     Dates: start: 20061112
  18. YAZ [Suspect]
     Indication: MENORRHAGIA
  19. LEXAPRO [Concomitant]
     Indication: DEPRESSION
     Dosage: UNK
     Dates: start: 20061001, end: 20070401
  20. ZANAFLEX [Concomitant]
     Dosage: UNK
     Dates: start: 20061101
  21. LOESTRIN 1.5/30 [Concomitant]
     Dosage: UNK
     Dates: start: 20061111
  22. AVIANE-28 [Concomitant]
     Dosage: UNK
     Dates: start: 20060301, end: 20060101
  23. NABUMETONE [Concomitant]
     Dosage: UNK
     Route: 048
     Dates: start: 20061112
  24. DIPHENOXYLATE [Concomitant]
     Indication: IRRITABLE BOWEL SYNDROME
     Dosage: UNK
     Dates: start: 20060601, end: 20060901
  25. ATROPINE [Concomitant]
     Indication: IRRITABLE BOWEL SYNDROME
     Dosage: UNK
     Dates: start: 20060601, end: 20060901
  26. DICYCLOMINE [Concomitant]
     Indication: IRRITABLE BOWEL SYNDROME
     Dosage: UNK
     Dates: start: 20060701, end: 20060701
  27. LORAZEPAM [Concomitant]
     Indication: ANXIETY
     Dosage: UNK
     Dates: start: 20040101, end: 20070201

REACTIONS (5)
  - PLEURAL EFFUSION [None]
  - ATELECTASIS [None]
  - PAIN [None]
  - PULMONARY EMBOLISM [None]
  - MENTAL DISORDER [None]
